FAERS Safety Report 5606320-7 (Version None)
Quarter: 2008Q1

REPORT INFORMATION
  Report Type: 
  Country: None (occurrence: None)
  Receive Date: 20080129
  Receipt Date: 20070611
  Transmission Date: 20080703
  Serious: No
  Sender: FDA-Public Use
  Company Number: A0655036A

PATIENT
  Age: 44 Year
  Sex: Male

DRUGS (3)
  1. WELLBUTRIN [Suspect]
     Indication: DEPRESSION
     Dosage: 150MG TWICE PER DAY
     Route: 048
  2. CRESTOR [Concomitant]
  3. BENICAR [Concomitant]

REACTIONS (1)
  - ALOPECIA [None]
